FAERS Safety Report 6017827-5 (Version None)
Quarter: 2008Q4

REPORT INFORMATION
  Report Type: 
  Country: None (occurrence: None)
  Receive Date: 20081223
  Receipt Date: 20081211
  Transmission Date: 20090506
  Serious: Yes (Other)
  Sender: FDA-Public Use
  Company Number: US-ROCHE-602119

PATIENT
  Age: 71 Year
  Sex: Female

DRUGS (1)
  1. BONIVA [Suspect]
     Indication: OSTEOPOROSIS
     Route: 065
     Dates: start: 20071201

REACTIONS (4)
  - BREAST CYST [None]
  - DYSPHAGIA [None]
  - OESOPHAGEAL DILATATION [None]
  - TONGUE CYST [None]
